FAERS Safety Report 9512854 (Version 2)
Quarter: 2013Q4

REPORT INFORMATION
  Report Type: Spontaneous
  Country: US (occurrence: US)
  Receive Date: 20130910
  Receipt Date: 20131209
  Transmission Date: 20140711
  Serious: No
  Sender: FDA-Public Use
  Company Number: US-ASTELLAS-2013US008676

PATIENT
  Age: 73 Year
  Sex: Male

DRUGS (1)
  1. XTANDI [Suspect]
     Indication: PROSTATE CANCER
     Dosage: 160 MG, UID/QD
     Route: 048
     Dates: start: 20130618

REACTIONS (6)
  - Sensation of heaviness [Unknown]
  - Acrochordon [Unknown]
  - Tinnitus [Unknown]
  - Testicular pain [Unknown]
  - Abdominal pain [Unknown]
  - Rhinorrhoea [Unknown]
